FAERS Safety Report 14015559 (Version 1)
Quarter: 2017Q3

REPORT INFORMATION
  Report Type: Report from Study
  Country: US (occurrence: US)
  Receive Date: 20170927
  Receipt Date: 20170927
  Transmission Date: 20171128
  Serious: Yes (Other)
  Sender: FDA-Public Use
  Company Number: US-UCBSA-2017037880

PATIENT
  Sex: Female

DRUGS (1)
  1. CERTOLIZUMAB PEGOL [Suspect]
     Active Substance: CERTOLIZUMAB PEGOL
     Indication: PRODUCT USED FOR UNKNOWN INDICATION
     Dosage: UNK

REACTIONS (12)
  - Psoriasis [Unknown]
  - Anxiety [Unknown]
  - Insomnia [Unknown]
  - Oral disorder [Unknown]
  - Deafness [Unknown]
  - Eye pain [Unknown]
  - Ear infection [Unknown]
  - Mood swings [Unknown]
  - Vision blurred [Unknown]
  - Nail disorder [Unknown]
  - Fatigue [Unknown]
  - Crying [Unknown]
